FAERS Safety Report 7704280-6 (Version None)
Quarter: 2011Q3

REPORT INFORMATION
  Report Type: 
  Country: None (occurrence: None)
  Receive Date: 20110823
  Receipt Date: 20110811
  Transmission Date: 20111222
  Serious: Yes (Other)
  Sender: FDA-Public Use
  Company Number: PHHY2011BR72840

PATIENT
  Age: 49 Year
  Sex: Female

DRUGS (3)
  1. VOLTAREN [Suspect]
     Dosage: 50 MG, UNK
     Route: 054
  2. CATAFLAM [Suspect]
     Indication: PAIN
     Dosage: 75 MG, UNK
     Route: 054
  3. MORPHINE SULFATE [Suspect]
     Dosage: UNK UKN, UNK

REACTIONS (2)
  - PAIN [None]
  - GAIT DISTURBANCE [None]
